FAERS Safety Report 18898033 (Version 1)
Quarter: 2021Q1

REPORT INFORMATION
  Report Type: Spontaneous
  Country: US (occurrence: US)
  Receive Date: 20210212
  Receipt Date: 20210212
  Transmission Date: 20210420
  Serious: Yes (Hospitalization)
  Sender: FDA-Public Use
  Company Number: None

PATIENT
  Age: 32 Year
  Sex: Female

DRUGS (1)
  1. TOBRAMYCIN 300MG/4ML BETHK GEQ [Suspect]
     Active Substance: TOBRAMYCIN
     Indication: BACTERIAL INFECTION
     Dosage: INHALED 14 DAYS ON AND 14 DAYS OFF
     Route: 055
     Dates: start: 20210101

REACTIONS (1)
  - Malaise [None]

NARRATIVE: CASE EVENT DATE: 20210212
